FAERS Safety Report 10283644 (Version 2)
Quarter: 2014Q4

REPORT INFORMATION
  Report Type: Spontaneous
  Country: US (occurrence: None)
  Receive Date: 20140703
  Receipt Date: 20141105
  Transmission Date: 20150528
  Serious: Yes (Death, Hospitalization, Other)
  Sender: FDA-Public Use
  Company Number: UNT-2014-000835

PATIENT
  Age: 69 Year
  Sex: Male
  Weight: 87.1 kg

DRUGS (2)
  1. TYVASO [Suspect]
     Active Substance: TREPROSTINIL
     Indication: COR PULMONALE CHRONIC
     Route: 055
     Dates: start: 20110908
  2. ADCIRCA (TADALAFIL) UNKNOWN [Concomitant]

REACTIONS (5)
  - Asthma [None]
  - Bronchospasm [None]
  - Septic shock [None]
  - Renal failure [None]
  - Chronic obstructive pulmonary disease [None]

NARRATIVE: CASE EVENT DATE: 20140525
